FAERS Safety Report 11995123 (Version 3)
Quarter: 2019Q4

REPORT INFORMATION
  Report Type: Spontaneous
  Country: US (occurrence: US)
  Receive Date: 20160203
  Receipt Date: 20191022
  Transmission Date: 20200122
  Serious: Yes (Hospitalization)
  Sender: FDA-Public Use
  Company Number: US-UCBSA-2015026152

PATIENT
  Age: 52 Year
  Sex: Male

DRUGS (3)
  1. KEPPRA [Suspect]
     Active Substance: LEVETIRACETAM
     Indication: PARTIAL SEIZURES
     Dosage: 500MG 2TABS IN THE AM AND 3TAB AT NIGHT
     Dates: start: 20160825
  2. KEPPRA XR [Suspect]
     Active Substance: LEVETIRACETAM
     Indication: SEIZURE
     Dosage: 500 MG/6 DAY (1000 MG AM, 2000 MG PM)
  3. KEPPRA [Suspect]
     Active Substance: LEVETIRACETAM
     Indication: EPILEPSY
     Dosage: INCREASED DOSE

REACTIONS (7)
  - Intentional product misuse [Unknown]
  - Product dose omission [Unknown]
  - Head injury [Unknown]
  - Incorrect dose administered [Unknown]
  - Dizziness [Unknown]
  - Seizure [Not Recovered/Not Resolved]
  - Memory impairment [Unknown]

NARRATIVE: CASE EVENT DATE: 20150126
